FAERS Safety Report 21835893 (Version 3)
Quarter: 2023Q1

REPORT INFORMATION
  Report Type: Report from Study
  Country: US (occurrence: US)
  Receive Date: 20230109
  Receipt Date: 20230329
  Transmission Date: 20230417
  Serious: No
  Sender: FDA-Public Use
  Company Number: US-ABBVIE-4232627

PATIENT
  Sex: Female

DRUGS (1)
  1. HUMIRA [Suspect]
     Active Substance: ADALIMUMAB
     Indication: Psoriasis
     Dosage: CITRATE FREE
     Route: 058
     Dates: start: 20170626

REACTIONS (4)
  - Joint instability [Recovering/Resolving]
  - Contusion [Recovering/Resolving]
  - Drug ineffective [Unknown]
  - Fall [Not Recovered/Not Resolved]
